FAERS Safety Report 7861751-X (Version None)
Quarter: 2011Q4

REPORT INFORMATION
  Report Type: 
  Country: None (occurrence: None)
  Receive Date: 20111026
  Receipt Date: 20111020
  Transmission Date: 20120403
  Serious: Yes (Hospitalization, Other)
  Sender: FDA-Public Use
  Company Number: GER/GER/11/0021662

PATIENT
  Age: 0 Year
  Sex: Female
  Weight: 3.31 kg

DRUGS (2)
  1. SERTRALINE HYDROCHLORIDE [Suspect]
     Indication: PRODUCT USED FOR UNKNOWN INDICATION
     Dosage: 100 MG, 1 IN 1 D, TRANSPLACENTAL
     Route: 064
  2. FOLSAURE (FOLIC ACID) [Concomitant]

REACTIONS (7)
  - HAEMATOMA [None]
  - FOETAL EXPOSURE DURING PREGNANCY [None]
  - CYANOSIS NEONATAL [None]
  - BONE DISORDER [None]
  - AGITATION NEONATAL [None]
  - GROSS MOTOR DELAY [None]
  - SCLERAL HAEMORRHAGE [None]
